FAERS Safety Report 16663985 (Version 1)
Quarter: 2019Q3

REPORT INFORMATION
  Report Type: Spontaneous
  Country: IT (occurrence: IT)
  Receive Date: 20190802
  Receipt Date: 20190802
  Transmission Date: 20191004
  Serious: Yes (Other)
  Sender: FDA-Public Use
  Company Number: IT-MYLANLABS-2019M1032806

PATIENT
  Age: 39 Year
  Sex: Female

DRUGS (7)
  1. ORLISTAT. [Interacting]
     Active Substance: ORLISTAT
     Indication: WEIGHT INCREASED
     Dosage: 180 MILLIGRAM, QD
     Route: 065
  2. FLUOXETINE [Concomitant]
     Active Substance: FLUOXETINE HYDROCHLORIDE
     Dosage: UNK
  3. TRUVADA TM [Interacting]
     Active Substance: EMTRICITABINE\TENOFOVIR DISOPROXIL FUMARATE
     Indication: HIV INFECTION
     Dosage: UNK
     Route: 065
  4. SINETROL [Interacting]
     Active Substance: HERBALS
     Indication: WEIGHT INCREASED
     Dosage: 450 MILLIGRAM, BID
  5. EFAVIRENZ. [Suspect]
     Active Substance: EFAVIRENZ
     Indication: HIV INFECTION
     Dosage: 600 MILLIGRAM
     Route: 065
  6. ATAZANAVIR W/RITONAVIR [Interacting]
     Active Substance: ATAZANAVIR\RITONAVIR
     Indication: HIV INFECTION
     Dosage: 300/100 MG
     Route: 065
  7. PSEUDOEPHEDRINE. [Concomitant]
     Active Substance: PSEUDOEPHEDRINE HYDROCHLORIDE
     Dosage: UNK

REACTIONS (2)
  - Drug interaction [Recovered/Resolved]
  - Virologic failure [Recovered/Resolved]
